FAERS Safety Report 17374585 (Version 1)
Quarter: 2020Q1

REPORT INFORMATION
  Report Type: Spontaneous
  Country: JP (occurrence: JP)
  Receive Date: 20200205
  Receipt Date: 20200205
  Transmission Date: 20200409
  Serious: Yes (Hospitalization, Other)
  Sender: FDA-Public Use
  Company Number: JP-NXDC-GLE-0006-2020

PATIENT
  Age: 83 Year
  Sex: Male
  Weight: 66 kg

DRUGS (14)
  1. ATORVASTATIN [Concomitant]
     Active Substance: ATORVASTATIN
  2. ANTEBATE [Concomitant]
     Active Substance: BETAMETHASONE DIPROPIONATE
  3. AMLODIPINE [Concomitant]
     Active Substance: AMLODIPINE BESYLATE
  4. HARNAL [Concomitant]
     Active Substance: TAMSULOSIN HYDROCHLORIDE
  5. MIGLITOL. [Concomitant]
     Active Substance: MIGLITOL
  6. FEXOFENADINE [Concomitant]
     Active Substance: FEXOFENADINE HYDROCHLORIDE
  7. PURSENNID [Concomitant]
  8. HEPARINOID [Concomitant]
     Active Substance: CHONDROITIN SULFATE (BOVINE)
  9. ALABEL [Suspect]
     Active Substance: AMINOLEVULINIC ACID HYDROCHLORIDE
     Indication: PHOTODYNAMIC DIAGNOSTIC PROCEDURE
     Route: 048
     Dates: start: 20191118, end: 20191118
  10. NIFLAN [Concomitant]
     Active Substance: PRANOPROFEN
  11. CRAVIT [Concomitant]
     Active Substance: LEVOFLOXACIN
  12. ACINON [Concomitant]
     Active Substance: NIZATIDINE
  13. OLMESARTAN OD [Concomitant]
     Active Substance: OLMESARTAN MEDOXOMIL
  14. GLIMEPIRIDE. [Concomitant]
     Active Substance: GLIMEPIRIDE

REACTIONS (1)
  - Blood pressure decreased [Recovered/Resolved]

NARRATIVE: CASE EVENT DATE: 20191118
